FAERS Safety Report 20793228 (Version 4)
Quarter: 2023Q1

REPORT INFORMATION
  Report Type: Other
  Country: IN (occurrence: None)
  Receive Date: 20220506
  Receipt Date: 20230206
  Transmission Date: 20230417
  Serious: Yes (Death, Other)
  Sender: FDA-Public Use
  Company Number: IN-ROCHE-3087971

PATIENT
  Age: 60 Year
  Sex: Female

DRUGS (1)
  1. TECENTRIQ [Suspect]
     Active Substance: ATEZOLIZUMAB
     Indication: Small cell lung cancer
     Dosage: EVERY 21 DAYS
     Route: 041
     Dates: start: 20220208

REACTIONS (2)
  - Jaundice [Unknown]
  - Death [Fatal]
